FAERS Safety Report 9722932 (Version 2)
Quarter: 2013Q4

REPORT INFORMATION
  Report Type: Report from Study
  Country: AU (occurrence: AU)
  Receive Date: 20131202
  Receipt Date: 20131213
  Transmission Date: 20140711
  Serious: Yes (Disabling, Other)
  Sender: FDA-Public Use
  Company Number: PHHY2013AU139321

PATIENT
  Age: 66 Year
  Sex: Female

DRUGS (1)
  1. ACLASTA [Suspect]
     Indication: OSTEOPOROSIS
     Dosage: 5 MG, UNK
     Route: 042
     Dates: start: 20121114

REACTIONS (5)
  - Syndactyly [Recovering/Resolving]
  - Acute stress disorder [Unknown]
  - Fall [Unknown]
  - Limb injury [Unknown]
  - Stress fracture [Unknown]
